FAERS Safety Report 11696528 (Version 2)
Quarter: 2016Q3

REPORT INFORMATION
  Report Type: Spontaneous
  Country: IT (occurrence: IT)
  Receive Date: 20151104
  Receipt Date: 20160721
  Transmission Date: 20161109
  Serious: Yes (Other)
  Sender: FDA-Public Use
  Company Number: IT-TEVA-605196ACC

PATIENT
  Age: 76 Year
  Sex: Female
  Weight: 50 kg

DRUGS (4)
  1. CLARITROMICINA TEVA - 500 MG COMPRESSE RIVESTITE CON FILM - TEVA ITALI [Suspect]
     Active Substance: CLARITHROMYCIN
     Indication: PHARYNGITIS
     Dosage: 1000 MILLIGRAM DAILY;
     Route: 048
     Dates: start: 20151021, end: 20151025
  2. INDERAL - 40 MG COMPRESSE ASTRAZENECA S.P.A. [Concomitant]
     Indication: PRODUCT USED FOR UNKNOWN INDICATION
  3. NORVASC - 5 MG COMPRESSE PFIZER ITALIA S.R.L. [Concomitant]
     Indication: PRODUCT USED FOR UNKNOWN INDICATION
  4. FLAMINASE - COMPRESSE 30 MG GRUNENTHAL ITALIA S.R.L. [Concomitant]
     Indication: PRODUCT USED FOR UNKNOWN INDICATION
     Dosage: 60 MG
     Route: 048

REACTIONS (3)
  - Aphonia [Recovered/Resolved]
  - Dyspnoea [Recovered/Resolved]
  - Cough [Recovered/Resolved]

NARRATIVE: CASE EVENT DATE: 20151022
